FAERS Safety Report 18145364 (Version 1)
Quarter: 2020Q3

REPORT INFORMATION
  Report Type: Spontaneous
  Country: US (occurrence: US)
  Receive Date: 20200813
  Receipt Date: 20200813
  Transmission Date: 20201103
  Serious: No
  Sender: FDA-Public Use
  Company Number: US-ACTELION-A-NJ2020-208147

PATIENT
  Sex: Female

DRUGS (16)
  1. CHOLESTYRAMINE. [Concomitant]
     Active Substance: CHOLESTYRAMINE
  2. ERYTHROMYCIN. [Concomitant]
     Active Substance: ERYTHROMYCIN
  3. NORCO [Concomitant]
     Active Substance: ACETAMINOPHEN\HYDROCODONE BITARTRATE
  4. FUROSEMIDE. [Concomitant]
     Active Substance: FUROSEMIDE
  5. FLUTICASONE. [Concomitant]
     Active Substance: FLUTICASONE
  6. MELOXICAM. [Concomitant]
     Active Substance: MELOXICAM
  7. METOPROLOL. [Concomitant]
     Active Substance: METOPROLOL
  8. VITAMIN D3 [Concomitant]
     Active Substance: CHOLECALCIFEROL
  9. AZELASTINE. [Concomitant]
     Active Substance: AZELASTINE HYDROCHLORIDE
  10. IMODIUM [Concomitant]
     Active Substance: LOPERAMIDE HYDROCHLORIDE
  11. ZYRTEC [Concomitant]
     Active Substance: CETIRIZINE HYDROCHLORIDE
  12. TRAMADOL. [Concomitant]
     Active Substance: TRAMADOL
  13. OPSUMIT [Suspect]
     Active Substance: MACITENTAN
     Indication: POLYMYOSITIS
     Dosage: 10 MG
     Route: 048
  14. IBUPROFEN. [Concomitant]
     Active Substance: IBUPROFEN
  15. DICLOFENAC [Concomitant]
     Active Substance: DICLOFENAC
  16. WARFARIN [Concomitant]
     Active Substance: WARFARIN

REACTIONS (3)
  - Pain in extremity [Unknown]
  - Groin pain [Unknown]
  - Weight increased [Unknown]
